FAERS Safety Report 4621205-0 (Version None)
Quarter: 2005Q1

REPORT INFORMATION
  Report Type: 
  Country: None (occurrence: None)
  Receive Date: 20050328
  Receipt Date: 20050111
  Transmission Date: 20050727
  Serious: Yes (Other)
  Sender: FDA-Public Use
  Company Number: 2005010845

PATIENT
  Age: 55 Year
  Sex: Female
  Weight: 64.8644 kg

DRUGS (2)
  1. NICORETTE [Suspect]
     Indication: SMOKING CESSATION THERAPY
     Dosage: CARTRIDGE ONCE A DAY, INHALATION
     Dates: start: 20050101
  2. NICOTINE PATCH (UNSPECIFIED) [Suspect]
     Indication: SMOKING CESSATION THERAPY
     Dosage: UNSPECIFIED, TRANSDERMAL
     Route: 062

REACTIONS (4)
  - PHARYNGOLARYNGEAL PAIN [None]
  - THROAT IRRITATION [None]
  - THYROID MASS [None]
  - THYROID NEOPLASM [None]
